FAERS Safety Report 15740323 (Version 1)
Quarter: 2018Q4

REPORT INFORMATION
  Report Type: Spontaneous
  Country: US (occurrence: US)
  Receive Date: 20181219
  Receipt Date: 20181219
  Transmission Date: 20190205
  Serious: Yes (Hospitalization)
  Sender: FDA-Public Use
  Company Number: None

PATIENT
  Sex: Male

DRUGS (5)
  1. HUMIRA [Suspect]
     Active Substance: ADALIMUMAB
     Indication: CROHN^S DISEASE
     Dosage: ?          OTHER FREQUENCY:EVERY 14 DAYS;?
     Route: 058
     Dates: start: 20170615
  2. PROTONIX [Concomitant]
     Active Substance: PANTOPRAZOLE SODIUM
  3. PROBIOTIC [Concomitant]
     Active Substance: PROBIOTICS NOS
  4. FOLIC ACID. [Concomitant]
     Active Substance: FOLIC ACID
  5. IMURAN [Concomitant]
     Active Substance: AZATHIOPRINE

REACTIONS (3)
  - Skin papilloma [None]
  - Unevaluable event [None]
  - Skin cancer [None]
